FAERS Safety Report 6344352-4 (Version None)
Quarter: 2009Q3

REPORT INFORMATION
  Report Type: 
  Country: None (occurrence: None)
  Receive Date: 20090903
  Receipt Date: 20090824
  Transmission Date: 20100115
  Serious: Yes (Other)
  Sender: FDA-Public Use
  Company Number: 020508155A

PATIENT
  Sex: Female

DRUGS (1)
  1. COLGATE BUBBLE FRUIT SPONGEBOB TOOTHPASTE [Suspect]
     Indication: DENTAL DISORDER PROPHYLAXIS
     Dosage: PEA SIZE AMT/ONCE/ORAL
     Route: 048

REACTIONS (22)
  - CONTUSION [None]
  - DYSPNOEA [None]
  - ECONOMIC PROBLEM [None]
  - ERYTHEMA [None]
  - GLOSSODYNIA [None]
  - HYPERSOMNIA [None]
  - HYPOPHAGIA [None]
  - JAW DISORDER [None]
  - LIP SWELLING [None]
  - LOCAL SWELLING [None]
  - ORAL DISCOMFORT [None]
  - ORAL PAIN [None]
  - OROPHARYNGEAL BLISTERING [None]
  - RASH [None]
  - SCREAMING [None]
  - SKIN CHAPPED [None]
  - SOMNOLENCE [None]
  - SWELLING FACE [None]
  - SWOLLEN TONGUE [None]
  - THERMAL BURN [None]
  - TREATMENT NONCOMPLIANCE [None]
  - UNEVALUABLE EVENT [None]
